FAERS Safety Report 12416400 (Version 3)
Quarter: 2016Q2

REPORT INFORMATION
  Report Type: Spontaneous
  Country: IT (occurrence: IT)
  Receive Date: 20160530
  Receipt Date: 20160622
  Transmission Date: 20160815
  Serious: Yes (Death, Other)
  Sender: FDA-Public Use
  Company Number: IT-BRISTOL-MYERS SQUIBB COMPANY-BMS-2016-042125

PATIENT
  Sex: Male

DRUGS (2)
  1. ETOPOSIDE PHOSPHATE [Suspect]
     Active Substance: ETOPOSIDE PHOSPHATE
     Indication: EWING^S SARCOMA
     Dosage: 1 DF, UNK
     Route: 042
  2. ETOPOSIDE. [Suspect]
     Active Substance: ETOPOSIDE
     Indication: EWING^S SARCOMA
     Dosage: 16.4 G/M2, UNK
     Route: 048

REACTIONS (2)
  - Acute myeloid leukaemia [Fatal]
  - Off label use [Unknown]
